FAERS Safety Report 7866679-7 (Version None)
Quarter: 2011Q4

REPORT INFORMATION
  Report Type: 
  Country: None (occurrence: None)
  Receive Date: 20111028
  Receipt Date: 20110727
  Transmission Date: 20120403
  Serious: No
  Sender: FDA-Public Use
  Company Number: US-GLAXOSMITHKLINE-A0938541A

PATIENT
  Age: 83 Year
  Sex: Female

DRUGS (7)
  1. FOSAMAX [Concomitant]
  2. PROCRIT [Concomitant]
  3. WARFARIN SODIUM [Concomitant]
  4. VITAMIN TAB [Concomitant]
  5. SPIRIVA [Concomitant]
  6. CALCIUM CARBONATE [Concomitant]
  7. ADVAIR DISKUS 100/50 [Suspect]
     Indication: CHRONIC OBSTRUCTIVE PULMONARY DISEASE
     Dosage: 1PUFF TWICE PER DAY
     Route: 055
     Dates: start: 20110714

REACTIONS (2)
  - DYSPHONIA [None]
  - DRY MOUTH [None]
